FAERS Safety Report 8485540-0 (Version None)
Quarter: 2012Q2

REPORT INFORMATION
  Report Type: 
  Country: None (occurrence: None)
  Receive Date: 20120627
  Receipt Date: 20120627
  Transmission Date: 20120825
  Serious: Yes (Other)
  Sender: FDA-Public Use
  Company Number: None

PATIENT
  Age: 57 Year
  Sex: Female
  Weight: 58.514 kg

DRUGS (1)
  1. ADVAIR HFA [Suspect]
     Indication: ASTHMA
     Dosage: 2 PUFFS TWICE A DAY
     Dates: start: 20110220, end: 20120214

REACTIONS (7)
  - SCRATCH [None]
  - TREMOR [None]
  - FEELING ABNORMAL [None]
  - MUSCLE CONTRACTIONS INVOLUNTARY [None]
  - PRURITUS [None]
  - CONTUSION [None]
  - INSOMNIA [None]
